FAERS Safety Report 25435621 (Version 3)
Quarter: 2025Q4

REPORT INFORMATION
  Report Type: Spontaneous
  Country: CA (occurrence: CA)
  Receive Date: 20250613
  Receipt Date: 20251120
  Transmission Date: 20260117
  Serious: Yes (Other)
  Sender: OTSUKA
  Company Number: CA-MMM-Otsuka-SUY651RF

PATIENT
  Age: 69 Year
  Sex: Female

DRUGS (9)
  1. ABILIFY MAINTENA [Suspect]
     Active Substance: ARIPIPRAZOLE
     Indication: Bipolar disorder
     Dosage: 300 MG, QM (1 EVERY 1 MONTHS) (REDUCED DOSE)
     Dates: start: 20241204, end: 20241204
  2. ABILIFY MAINTENA [Suspect]
     Active Substance: ARIPIPRAZOLE
     Dosage: 800 MG (ONCE) ((2X400 MG)
     Dates: start: 20240814, end: 20240814
  3. ABILIFY MAINTENA [Suspect]
     Active Substance: ARIPIPRAZOLE
     Dosage: 400 MG, QM (1 EVERY 1 MONTHS)
  4. CHOLECALCIFEROL [Concomitant]
     Active Substance: CHOLECALCIFEROL
     Indication: Product used for unknown indication
     Dosage: 3000 IU, DAILY
  5. DIVALPROEX SODIUM [Concomitant]
     Active Substance: DIVALPROEX SODIUM
     Indication: Product used for unknown indication
     Dosage: 1000 MG, DAILY
     Dates: start: 202408
  6. DIVALPROEX SODIUM [Concomitant]
     Active Substance: DIVALPROEX SODIUM
     Dosage: 500 MG, DAILY (DOSE REDUCED)
     Dates: start: 202410
  7. FUROSEMIDE [Concomitant]
     Active Substance: FUROSEMIDE
     Indication: Product used for unknown indication
     Dosage: 20 MG, QD (QAM)
  8. METFORMIN [Concomitant]
     Active Substance: METFORMIN HYDROCHLORIDE
     Indication: Product used for unknown indication
     Dosage: 1000 MG, BID
  9. QUETIAPINE [Concomitant]
     Active Substance: QUETIAPINE
     Indication: Product used for unknown indication
     Dosage: 25 MG, QD (QHS)
     Dates: start: 202408

REACTIONS (15)
  - Lupus-like syndrome [Recovering/Resolving]
  - Butterfly rash [Recovering/Resolving]
  - Fixed eruption [Recovering/Resolving]
  - Hot flush [Recovering/Resolving]
  - Rash pruritic [Recovering/Resolving]
  - Drug eruption [Recovering/Resolving]
  - Exfoliative rash [Recovering/Resolving]
  - Rash erythematous [Recovering/Resolving]
  - Rash papular [Recovering/Resolving]
  - Photosensitivity reaction [Recovering/Resolving]
  - Angioedema [Recovering/Resolving]
  - Urticaria [Recovering/Resolving]
  - Alopecia [Recovering/Resolving]
  - Sedation [Recovering/Resolving]
  - Tremor [Recovering/Resolving]

NARRATIVE: CASE EVENT DATE: 20240901
